FAERS Safety Report 15990655 (Version 1)
Quarter: 2019Q1

REPORT INFORMATION
  Report Type: Spontaneous
  Country: US (occurrence: US)
  Receive Date: 20190221
  Receipt Date: 20190221
  Transmission Date: 20190418
  Serious: Yes (Hospitalization)
  Sender: FDA-Public Use
  Company Number: None

PATIENT
  Age: 66 Year
  Sex: Male

DRUGS (9)
  1. ONDANSETRON 8MG [Concomitant]
     Active Substance: ONDANSETRON
  2. CELECOXIB 200MG [Concomitant]
     Active Substance: CELECOXIB
  3. POT CL MICRO 20MEQ [Concomitant]
  4. TAMSULOSIN 0.4MG [Concomitant]
     Active Substance: TAMSULOSIN
  5. NEOMYCIN 500MG [Concomitant]
  6. CAPECITABINE. [Suspect]
     Active Substance: CAPECITABINE
     Indication: RECTAL CANCER
     Route: 048
     Dates: start: 20180829, end: 20190220
  7. SUPREP BOWEL [Concomitant]
  8. METRONIDAZOL 500MG [Concomitant]
     Active Substance: METRONIDAZOLE
  9. FOLIC ACID 1000MCG [Concomitant]

REACTIONS (1)
  - Unevaluable event [None]

NARRATIVE: CASE EVENT DATE: 20190201
